FAERS Safety Report 24151493 (Version 2)
Quarter: 2024Q3

REPORT INFORMATION
  Report Type: Spontaneous
  Country: JP (occurrence: JP)
  Receive Date: 20240730
  Receipt Date: 20240902
  Transmission Date: 20241016
  Serious: No
  Sender: ACCORD
  Company Number: JP-Accord-436145

PATIENT
  Age: 6 Decade
  Sex: Male
  Weight: 58 kg

DRUGS (9)
  1. TACROLIMUS [Interacting]
     Active Substance: TACROLIMUS
     Indication: Immunosuppressant drug therapy
  2. ENSITRELVIR [Interacting]
     Active Substance: ENSITRELVIR
     Indication: COVID-19
     Dosage: ON DAY 1
  3. PREDNISOLONE [Concomitant]
     Active Substance: PREDNISOLONE
  4. AZATHIOPRINE [Concomitant]
     Active Substance: AZATHIOPRINE
  5. BENZBROMARONE [Concomitant]
     Active Substance: BENZBROMARONE
  6. ATORVASTATIN [Concomitant]
     Active Substance: ATORVASTATIN
  7. AMBROXOL [Concomitant]
     Active Substance: AMBROXOL
  8. DIETARY SUPPLEMENT\PROBIOTICS [Concomitant]
     Active Substance: DIETARY SUPPLEMENT\PROBIOTICS NOS
  9. ENSITRELVIR [Interacting]
     Active Substance: ENSITRELVIR
     Indication: COVID-19
     Dosage: DAYS 2 TO 5

REACTIONS (3)
  - Drug interaction [Unknown]
  - Immunosuppressant drug level increased [Recovered/Resolved]
  - COVID-19 [Recovered/Resolved]
